FAERS Safety Report 8839742 (Version 2)
Quarter: 2012Q4

REPORT INFORMATION
  Report Type: 
  Country: JP (occurrence: JP)
  Receive Date: 20121015
  Receipt Date: 20121022
  Transmission Date: 20130627
  Serious: Yes (Hospitalization)
  Sender: FDA-Public Use
  Company Number: JP-ASTRAZENECA-2012SE77324

PATIENT
  Age: 77 Year
  Sex: Female
  Weight: 38 kg

DRUGS (4)
  1. CRESTOR [Suspect]
     Indication: HYPERLIPIDAEMIA
     Route: 048
     Dates: start: 20120903, end: 20120909
  2. NESINA [Suspect]
     Indication: DIABETES MELLITUS
     Route: 048
     Dates: start: 20120903, end: 20120909
  3. DOGMATYL [Concomitant]
     Dosage: Dose unknown
     Route: 065
  4. BONOTEO [Concomitant]
     Dosage: Dose unknown
     Route: 065
     Dates: start: 201111

REACTIONS (1)
  - Erythema multiforme [Recovering/Resolving]
